FAERS Safety Report 24445235 (Version 1)
Quarter: 2024Q4

REPORT INFORMATION
  Report Type: Spontaneous
  Country: US (occurrence: None)
  Receive Date: 20241016
  Receipt Date: 20241016
  Transmission Date: 20250115
  Serious: Yes (Hospitalization)
  Sender: Public
  Company Number: None

PATIENT
  Sex: Female

DRUGS (3)
  1. PAZOPANIB HYDROCHLORIDE [Suspect]
     Active Substance: PAZOPANIB HYDROCHLORIDE
     Indication: Malignant connective tissue neoplasm
     Dosage: FREQUENCY : DAILY;?TAKE 4 TABLETS BY MOUTH 1 TIME A DAY.  START AT E TABLETS DAILY FOR 3 DAYS THEN I
     Route: 048
     Dates: start: 202408
  2. LOVENOX [Concomitant]
  3. ELIQUIS [Concomitant]

REACTIONS (1)
  - Pulmonary embolism [None]
